FAERS Safety Report 7933775-5 (Version None)
Quarter: 2011Q4

REPORT INFORMATION
  Report Type: 
  Country: None (occurrence: None)
  Receive Date: 20111118
  Receipt Date: 20111108
  Transmission Date: 20120403
  Serious: Yes (Other)
  Sender: FDA-Public Use
  Company Number: 1106736

PATIENT
  Age: 74 Year
  Sex: Male

DRUGS (7)
  1. METHOTREXATE [Suspect]
     Indication: CENTRAL NERVOUS SYSTEM LYMPHOMA
     Dosage: 400 MCG TWICE-WEEKLY, INTRAOCULAR ; WEEKLY INTRAOCULAR ; MONTHLY INTRAOCULAR
     Route: 031
  2. METHOTREXATE [Suspect]
     Indication: CENTRAL NERVOUS SYSTEM LYMPHOMA
     Dosage: 400 MCG TWICE-WEEKLY, INTRAOCULAR ; WEEKLY INTRAOCULAR ; MONTHLY INTRAOCULAR
     Route: 031
  3. METHOTREXATE [Suspect]
     Indication: CENTRAL NERVOUS SYSTEM LYMPHOMA
     Dosage: 400 MCG TWICE-WEEKLY, INTRAOCULAR ; WEEKLY INTRAOCULAR ; MONTHLY INTRAOCULAR
     Route: 031
  4. ETOPOSIDE [Concomitant]
  5. CYCLOPHOSPHAMIDE [Concomitant]
  6. CARBOPLATIN [Concomitant]
  7. MELPHALAN HYDROCHLORIDE [Concomitant]

REACTIONS (3)
  - MACULOPATHY [None]
  - OPTIC NERVE DISORDER [None]
  - VISUAL ACUITY REDUCED [None]
